FAERS Safety Report 5740319-5 (Version None)
Quarter: 2008Q2

REPORT INFORMATION
  Report Type: 
  Country: None (occurrence: None)
  Receive Date: 20080516
  Receipt Date: 20080506
  Transmission Date: 20081010
  Serious: No
  Sender: FDA-Public Use
  Company Number: GB-PFIZER INC-2007064319

PATIENT
  Age: 19 Year
  Sex: Male

DRUGS (6)
  1. PHENYTOIN [Suspect]
  2. IBUPROFEN [Suspect]
  3. CHLORPHENIRAMINE [Suspect]
  4. CYCLOBENZAPRINE [Suspect]
  5. LIGNOCAINE [Suspect]
  6. PHENYLPROPANOLAMINE [Suspect]

REACTIONS (1)
  - NO ADVERSE EVENT [None]
